FAERS Safety Report 4445311-9 (Version None)
Quarter: 2004Q3

REPORT INFORMATION
  Report Type: 
  Country: None (occurrence: None)
  Receive Date: 20040730
  Receipt Date: 20040525
  Transmission Date: 20050211
  Serious: Yes (Hospitalization)
  Sender: FDA-Public Use
  Company Number: PHEH2004US00455

PATIENT
  Age: 51 Year
  Sex: Male
  Weight: 87.1 kg

DRUGS (2)
  1. GLEEVEC [Suspect]
     Indication: CHRONIC MYELOID LEUKAEMIA
     Dosage: 400 MG, QD, ORAL
     Route: 048
     Dates: start: 20031001
  2. XANAX [Concomitant]

REACTIONS (7)
  - DERMATITIS BULLOUS [None]
  - EYELID OEDEMA [None]
  - HERPES ZOSTER OPHTHALMIC [None]
  - MUSCLE CRAMP [None]
  - PRURITUS [None]
  - PYREXIA [None]
  - SKIN DESQUAMATION [None]
